FAERS Safety Report 8907083 (Version 1)
Quarter: 2012Q4

REPORT INFORMATION
  Report Type: 
  Country: US (occurrence: US)
  Receive Date: 20121114
  Receipt Date: 20121114
  Transmission Date: 20130627
  Serious: No
  Sender: FDA-Public Use
  Company Number: US-BAYER-2012-116828

PATIENT
  Age: 46 Year
  Sex: Female

DRUGS (5)
  1. ULTRAVIST [Suspect]
     Indication: CT SCAN
     Dosage: UNK
     Route: 042
     Dates: start: 20121025, end: 20121025
  2. VISTARIL [Suspect]
     Dosage: 25 mg, BID
     Dates: start: 20121101
  3. VISTARIL [Suspect]
     Dosage: 25 mg, UNK
  4. VISTARIL [Suspect]
  5. GABAPENTIN [Concomitant]
     Indication: BURNING SENSATION
     Dosage: 100 mg, UNK

REACTIONS (21)
  - Urticaria [Recovered/Resolved]
  - Nausea [None]
  - Nervousness [None]
  - Tremor [None]
  - Burning sensation [None]
  - Anorectal discomfort [None]
  - Vulvovaginal burning sensation [None]
  - Ocular hyperaemia [None]
  - Eye pain [None]
  - Eye irritation [None]
  - Feeling abnormal [None]
  - Somnolence [None]
  - Insomnia [None]
  - Chills [None]
  - Flushing [None]
  - Feeling hot [None]
  - Weight decreased [None]
  - Erythema [None]
  - Joint injury [None]
  - Arthralgia [None]
  - Back pain [None]
